FAERS Safety Report 8590845-9 (Version None)
Quarter: 2012Q3

REPORT INFORMATION
  Report Type: 
  Country: None (occurrence: None)
  Receive Date: 20120813
  Receipt Date: 20120730
  Transmission Date: 20120928
  Serious: Yes (Other)
  Sender: FDA-Public Use
  Company Number: DE-ABBOTT-09P-062-0600169-00

PATIENT
  Age: 42 Year
  Sex: Male

DRUGS (4)
  1. IBUPROFEN [Suspect]
     Indication: ANKYLOSING SPONDYLITIS
  2. ADALIMUMAB [Suspect]
     Indication: ANKYLOSING SPONDYLITIS
  3. ADALIMUMAB [Suspect]
  4. SULFASALAZINE [Suspect]
     Indication: ANKYLOSING SPONDYLITIS

REACTIONS (2)
  - NEPHRITIS [None]
  - SARCOIDOSIS [None]
